FAERS Safety Report 5414495-8 (Version None)
Quarter: 2007Q3

REPORT INFORMATION
  Report Type: 
  Country: None (occurrence: None)
  Receive Date: 20070713
  Receipt Date: 20070504
  Transmission Date: 20080115
  Serious: Yes (Hospitalization, Other)
  Sender: FDA-Public Use
  Company Number: US-JNJFOC-20061002392

PATIENT
  Age: 19 Year
  Sex: Female
  Weight: 80 kg

DRUGS (4)
  1. ORTHO EVRA [Suspect]
     Indication: CONTRACEPTION
     Dosage: TRANSDERMAL
     Route: 062
     Dates: start: 20040201, end: 20050901
  2. HYDROCODONE BITARTRATE/ACETAMINOPHEN (VICODIN) [Concomitant]
  3. COLACE (DOCUSATE SODIUM) [Concomitant]
  4. LOVENOX [Concomitant]

REACTIONS (1)
  - DEEP VEIN THROMBOSIS [None]
